FAERS Safety Report 5952071-9 (Version None)
Quarter: 2008Q4

REPORT INFORMATION
  Report Type: 
  Country: None (occurrence: None)
  Receive Date: 20081113
  Receipt Date: 20080425
  Transmission Date: 20090506
  Serious: No
  Sender: FDA-Public Use
  Company Number: A0712730A

PATIENT
  Age: 79 Year
  Sex: Male

DRUGS (3)
  1. COREG [Suspect]
     Indication: HYPERTENSION
     Dosage: 6.25MG TWICE PER DAY
     Route: 048
     Dates: start: 20071001, end: 20080227
  2. COREG CR [Suspect]
     Route: 048
  3. PLAVIX [Concomitant]

REACTIONS (2)
  - DRY MOUTH [None]
  - PERIPHERAL COLDNESS [None]
